FAERS Safety Report 6411505 (Version 27)
Quarter: 2014Q2

REPORT INFORMATION
  Report Type: Spontaneous
  Country: US (occurrence: US)
  Receive Date: 20070912
  Receipt Date: 20140512
  Transmission Date: 20141212
  Serious: Yes (Hospitalization, Other)
  Sender: FDA-Public Use
  Company Number: PHEH2007US12073

PATIENT
  Age: 68 Year
  Sex: Female

DRUGS (69)
  1. ZOMETA [Suspect]
     Indication: PLASMA CELL MYELOMA
     Dosage: 4 MG, QMO
     Route: 042
     Dates: start: 20050720, end: 200701
  2. ZOMETA [Suspect]
     Indication: BONE LESION
     Route: 042
     Dates: end: 20080107
  3. ZOMETA [Suspect]
     Route: 042
     Dates: end: 2009
  4. ZOMETA [Suspect]
     Route: 042
     Dates: start: 20110606
  5. AREDIA [Suspect]
     Dosage: 90 MG, QMO
     Route: 042
     Dates: start: 199703
  6. VINCRISTINE + ADRIAMYCIN + DEXAMETHASONE [Concomitant]
     Dates: start: 199703
  7. NEURONTIN [Concomitant]
  8. LORAZEPAM [Concomitant]
  9. BENTYL [Concomitant]
  10. PREVACID [Concomitant]
  11. AMBIEN [Concomitant]
  12. OXYCODONE [Concomitant]
     Indication: PAIN
  13. CHEMOTHERAPEUTICS NOS [Concomitant]
  14. RELAFEN [Concomitant]
  15. VIOXX [Concomitant]
     Dates: end: 2003
  16. COUMADIN ^BOOTS^ [Concomitant]
  17. FLEXERIL [Concomitant]
  18. CARBIDOPA [Concomitant]
     Indication: MUSCLE SPASMS
  19. VALIUM [Concomitant]
  20. SKELAXIN [Concomitant]
  21. ATIVAN [Concomitant]
  22. PAMELOR [Concomitant]
  23. ZELNORM                                 /CAN/ [Concomitant]
  24. MOBIC [Concomitant]
  25. LEXAPRO [Concomitant]
     Dates: start: 20031103
  26. CELEBREX [Concomitant]
  27. OXYIR [Concomitant]
     Indication: PAIN
     Dates: start: 20081006
  28. CYMBALTA [Concomitant]
  29. FAMVIR                                  /NET/ [Concomitant]
     Dosage: 500 MG, TID
     Dates: start: 20080715
  30. OXYCONTIN [Concomitant]
  31. EFEXOR XR [Concomitant]
     Dates: start: 20071011
  32. PAXIL [Concomitant]
  33. L-DOPA [Concomitant]
     Indication: RESTLESS LEGS SYNDROME
  34. OMNICEF [Concomitant]
  35. Z-PAK [Concomitant]
  36. NASACORT [Concomitant]
  37. TESSALON PERLE [Concomitant]
  38. MEDROL [Concomitant]
  39. CLARITIN [Concomitant]
  40. ZITHROMAX ^HEINRICH MACK^ [Concomitant]
     Dates: end: 20060724
  41. LAMICTAL ^BURROUGHS WELLCOME^ [Concomitant]
  42. DECADRON                                /CAN/ [Concomitant]
  43. PREDNISONE [Concomitant]
  44. MULTIVITAMINS [Concomitant]
  45. PERCOCET [Concomitant]
  46. UNASYN [Concomitant]
     Route: 065
  47. LANSOPRAZOLE [Concomitant]
  48. ZOLPIDEM TARTRATE [Concomitant]
  49. PRILOSEC [Concomitant]
     Dosage: 20 MG, BID
     Route: 048
  50. AUGMENTIN [Concomitant]
     Indication: UPPER RESPIRATORY TRACT INFECTION
  51. DICLOXACILLIN [Concomitant]
     Dosage: 500 MG, QID
     Dates: start: 1997
  52. PENICILLIN NOS [Concomitant]
     Dates: start: 200712, end: 200801
  53. CEFALEXIN [Concomitant]
  54. METAMUCIL [Concomitant]
  55. FLAGYL [Concomitant]
  56. ZYRTEC [Concomitant]
  57. LOTREL [Concomitant]
  58. CELEXA [Concomitant]
     Dosage: 10 MG, QD
     Route: 048
     Dates: start: 20091123
  59. XALATAN [Concomitant]
     Route: 047
  60. ASPIRIN ^BAYER^ [Concomitant]
     Dosage: 81 MG, QD
     Route: 048
  61. NORVASC                                 /DEN/ [Concomitant]
  62. TYLENOL [Concomitant]
  63. MAALOX                                  /NET/ [Concomitant]
  64. FRAGMIN                                 /NET/ [Concomitant]
  65. XANAX [Concomitant]
  66. LOPRESSOR [Concomitant]
  67. COLACE [Concomitant]
  68. PROTONIX ^PHARMACIA^ [Concomitant]
  69. NITROSTAT [Concomitant]
     Route: 060

REACTIONS (174)
  - Hip fracture [Unknown]
  - Arthralgia [Unknown]
  - Subclavian vein thrombosis [Unknown]
  - Left atrial dilatation [Unknown]
  - Aortic valve sclerosis [Unknown]
  - Mitral valve sclerosis [Unknown]
  - Tricuspid valve incompetence [Unknown]
  - Neuropathy peripheral [Unknown]
  - Varicose vein [Unknown]
  - Peripheral venous disease [Unknown]
  - Depression [Unknown]
  - Reflux gastritis [Unknown]
  - Osteonecrosis of jaw [Unknown]
  - Pain [Unknown]
  - Discomfort [Unknown]
  - Deformity [Unknown]
  - Hypophagia [Unknown]
  - Emotional distress [Unknown]
  - Anxiety [Unknown]
  - Anhedonia [Unknown]
  - Injury [Unknown]
  - Dental caries [Unknown]
  - Joint stiffness [Unknown]
  - Mouth ulceration [Unknown]
  - Sensitivity of teeth [Unknown]
  - Swelling [Unknown]
  - Hypertension [Unknown]
  - Adenoma benign [Unknown]
  - Fall [Unknown]
  - Rib fracture [Unknown]
  - Upper limb fracture [Unknown]
  - Restless legs syndrome [Unknown]
  - Laryngospasm [Unknown]
  - Compression fracture [Unknown]
  - Bronchitis [Unknown]
  - Cataract [Unknown]
  - Atelectasis [Unknown]
  - Sinusitis [Unknown]
  - Spondylolysis [Unknown]
  - Scoliosis [Unknown]
  - Spinal column stenosis [Unknown]
  - Renal cyst [Unknown]
  - Pulmonary mass [Unknown]
  - Osteoporosis [Unknown]
  - Angina pectoris [Unknown]
  - Synovial cyst [Unknown]
  - Tendon injury [Unknown]
  - Comminuted fracture [Unknown]
  - Tenosynovitis [Unknown]
  - Exfoliation glaucoma [Unknown]
  - Cardiac failure congestive [Unknown]
  - Presbyopia [Unknown]
  - Myoclonus [Unknown]
  - Facet joint syndrome [Unknown]
  - Constipation [Unknown]
  - Insomnia [Unknown]
  - Muscle injury [Unknown]
  - Cardiac murmur [Unknown]
  - Dizziness [Unknown]
  - Tendonitis [Unknown]
  - Rash [Unknown]
  - Vertigo [Unknown]
  - Labyrinthitis [Recovered/Resolved]
  - Anaemia [Unknown]
  - Arthritis [Unknown]
  - Bone pain [Unknown]
  - Diarrhoea [Unknown]
  - Muscle spasms [Unknown]
  - Non-cardiac chest pain [Unknown]
  - Pain in extremity [Unknown]
  - Drug dependence [Unknown]
  - Headache [Unknown]
  - Chills [Unknown]
  - Fatigue [Unknown]
  - Crying [Unknown]
  - Nervousness [Unknown]
  - Intervertebral disc protrusion [Unknown]
  - Monoclonal immunoglobulin present [Unknown]
  - Neck pain [Unknown]
  - Groin pain [Unknown]
  - Reflux laryngitis [Unknown]
  - Leukopenia [Not Recovered/Not Resolved]
  - Abdominal discomfort [Unknown]
  - Upper respiratory tract infection [Unknown]
  - Ear infection [Unknown]
  - Dysphagia [Unknown]
  - Osteopenia [Unknown]
  - Anal candidiasis [Unknown]
  - Rectal haemorrhage [Unknown]
  - Costochondritis [Unknown]
  - Musculoskeletal chest pain [Unknown]
  - Viral infection [Unknown]
  - Oral fungal infection [Unknown]
  - Amblyopia [Unknown]
  - Nausea [Unknown]
  - Vomiting [Unknown]
  - Brain scan abnormal [Unknown]
  - Tendon disorder [Unknown]
  - Dysarthria [Unknown]
  - Macule [Unknown]
  - Skin lesion [Unknown]
  - Erythema [Unknown]
  - Peroneal nerve palsy [Unknown]
  - Foot fracture [Unknown]
  - Skin ulcer [Unknown]
  - Dermal cyst [Unknown]
  - Localised infection [Unknown]
  - Periodontal disease [Unknown]
  - Lordosis [Unknown]
  - Spondylolisthesis [Unknown]
  - Vertebral foraminal stenosis [Unknown]
  - Post herpetic neuralgia [Unknown]
  - Bursitis [Unknown]
  - Osteomyelitis [Unknown]
  - Fungal skin infection [Unknown]
  - Tooth infection [Unknown]
  - Plasma cell myeloma [Unknown]
  - Malignant neoplasm progression [Unknown]
  - Metastases to bone [Unknown]
  - Hyperhidrosis [Unknown]
  - Blepharitis [Unknown]
  - Blindness [Unknown]
  - Eye pain [Unknown]
  - Joint dislocation [Unknown]
  - Bone cyst [Unknown]
  - Osteoarthritis [Unknown]
  - Aortic arteriosclerosis [Unknown]
  - Arteriosclerosis coronary artery [Unknown]
  - Bone lesion [Unknown]
  - Cystocele [Unknown]
  - Osteolysis [Unknown]
  - Vena cava thrombosis [Unknown]
  - Kyphosis [Unknown]
  - Intervertebral disc space narrowing [Unknown]
  - Intervertebral disc degeneration [Unknown]
  - Intervertebral disc disorder [Unknown]
  - Spinal osteoarthritis [Unknown]
  - Aortic disorder [Unknown]
  - Osteosclerosis [Unknown]
  - Phlebolith [Unknown]
  - Bone disorder [Unknown]
  - Papule [Unknown]
  - Skin hyperpigmentation [Unknown]
  - Dyspnoea [Unknown]
  - Oral pain [Unknown]
  - Pruritus [Unknown]
  - Local swelling [Unknown]
  - Musculoskeletal discomfort [Unknown]
  - Musculoskeletal pain [Unknown]
  - Hypoaesthesia [Unknown]
  - Paraesthesia [Unknown]
  - Abdominal pain [Unknown]
  - Dry mouth [Unknown]
  - Aortic calcification [Unknown]
  - Haemangioma of bone [Unknown]
  - Mood swings [Unknown]
  - Ligament sprain [Unknown]
  - Tendon rupture [Unknown]
  - Joint effusion [Unknown]
  - Bone fragmentation [Unknown]
  - Osteonecrosis [Unknown]
  - Neuropathic arthropathy [Unknown]
  - Pain in jaw [Unknown]
  - Exostosis [Unknown]
  - Calcinosis [Unknown]
  - Bone marrow oedema [Unknown]
  - Lung hyperinflation [Unknown]
  - Vascular calcification [Unknown]
  - Adrenal mass [Unknown]
  - Pancreatic atrophy [Unknown]
  - Pancreatic steatosis [Unknown]
  - Lung infiltration [Unknown]
  - Carotid artery disease [Unknown]
  - Vertebral wedging [Unknown]
